FAERS Safety Report 25473342 (Version 2)
Quarter: 2025Q3

REPORT INFORMATION
  Report Type: Spontaneous
  Country: EU (occurrence: EU)
  Receive Date: 20250624
  Receipt Date: 20250701
  Transmission Date: 20251021
  Serious: Yes (Life-Threatening, Other)
  Sender: PFIZER
  Company Number: EU-PFIZER INC-PV202500073958

PATIENT
  Age: 73 Year
  Sex: Female

DRUGS (2)
  1. DOXYCYCLINE HYCLATE [Suspect]
     Active Substance: DOXYCYCLINE HYCLATE
     Indication: Endocarditis Q fever
     Dates: start: 202404
  2. HYDROXYCHLOROQUINE [Suspect]
     Active Substance: HYDROXYCHLOROQUINE
     Indication: Endocarditis Q fever
     Dates: start: 202404, end: 2024

REACTIONS (1)
  - Drug ineffective [Unknown]
